FAERS Safety Report 15321397 (Version 2)
Quarter: 2018Q3

REPORT INFORMATION
  Report Type: Report from Study
  Country: US (occurrence: US)
  Receive Date: 20180827
  Receipt Date: 20180917
  Transmission Date: 20181010
  Serious: No
  Sender: FDA-Public Use
  Company Number: US-ALEXION PHARMACEUTICALS INC.-A201810848

PATIENT
  Sex: Male

DRUGS (1)
  1. SOLIRIS [Suspect]
     Active Substance: ECULIZUMAB
     Indication: PAROXYSMAL NOCTURNAL HAEMOGLOBINURIA
     Dosage: UNK
     Route: 065

REACTIONS (19)
  - Lymphocyte count abnormal [Unknown]
  - Red blood cell count abnormal [Unknown]
  - Red cell distribution width abnormal [Unknown]
  - Blood sodium abnormal [Unknown]
  - Mean cell volume abnormal [Unknown]
  - Granulocytes abnormal [Unknown]
  - Carbon dioxide abnormal [Unknown]
  - White blood cell disorder [Unknown]
  - Platelet count abnormal [Unknown]
  - Monocyte count abnormal [Unknown]
  - Mean cell haemoglobin concentration abnormal [Unknown]
  - Blood chloride abnormal [Unknown]
  - Lymphocyte percentage abnormal [Unknown]
  - Blood urea abnormal [Unknown]
  - Haemoglobin abnormal [Unknown]
  - Protein total abnormal [Unknown]
  - Mean platelet volume abnormal [Unknown]
  - Haematocrit abnormal [Unknown]
  - Mean cell haemoglobin increased [Unknown]
